FAERS Safety Report 4287757-8 (Version None)
Quarter: 2004Q1

REPORT INFORMATION
  Report Type: 
  Country: None (occurrence: None)
  Receive Date: 20040209
  Receipt Date: 20030915
  Transmission Date: 20041129
  Serious: No
  Sender: FDA-Public Use
  Company Number: US-GLAXOSMITHKLINE-A0425950A

PATIENT
  Age: 61 Year
  Sex: Male

DRUGS (6)
  1. PAXIL [Suspect]
     Indication: MAJOR DEPRESSION
     Dosage: 12.5MG PER DAY
     Route: 048
     Dates: start: 20030908
  2. BEXTRA [Concomitant]
     Dosage: 20MG TWICE PER DAY
  3. PROTONIX [Concomitant]
     Dosage: 40MG PER DAY
  4. COZAAR [Concomitant]
     Dosage: 50MG PER DAY
  5. XANAX [Concomitant]
     Dosage: .25MG AS REQUIRED
  6. SEROQUEL [Concomitant]

REACTIONS (4)
  - DECREASED APPETITE [None]
  - DRUG INEFFECTIVE [None]
  - INCREASED APPETITE [None]
  - WEIGHT INCREASED [None]
